FAERS Safety Report 9386694 (Version 2)
Quarter: 2013Q3

REPORT INFORMATION
  Report Type: Report from Study
  Country: US (occurrence: US)
  Receive Date: 20130708
  Receipt Date: 20130718
  Transmission Date: 20140515
  Serious: Yes (Hospitalization, Other)
  Sender: FDA-Public Use
  Company Number: US-ROCHE-1245118

PATIENT
  Age: 51 Year
  Sex: Female
  Weight: 71.28 kg

DRUGS (6)
  1. PEGASYS [Suspect]
     Indication: HEPATITIS
     Route: 065
     Dates: start: 20130523, end: 20130618
  2. RIBAVIRIN [Suspect]
     Indication: HEPATITIS
     Route: 065
     Dates: start: 20130523, end: 20130618
  3. INCIVEK [Suspect]
     Indication: HEPATITIS
     Route: 048
     Dates: start: 20130523, end: 20130618
  4. KLONOPIN [Concomitant]
     Indication: DEPRESSION
     Route: 065
  5. LACTULOSE [Concomitant]
  6. NORCO [Concomitant]

REACTIONS (14)
  - Hepatic encephalopathy [Recovered/Resolved]
  - Ammonia increased [Recovered/Resolved]
  - White blood cell count decreased [Recovered/Resolved]
  - Platelet count decreased [Recovered/Resolved]
  - Hepatic cirrhosis [Unknown]
  - Insomnia [Recovered/Resolved]
  - Neck pain [Recovered/Resolved]
  - Feeling abnormal [Not Recovered/Not Resolved]
  - Amnesia [Not Recovered/Not Resolved]
  - Pain [Not Recovered/Not Resolved]
  - Headache [Not Recovered/Not Resolved]
  - Malaise [Not Recovered/Not Resolved]
  - Thrombocytopenia [Unknown]
  - Bone pain [Not Recovered/Not Resolved]
